FAERS Safety Report 10018300 (Version 1)
Quarter: 2014Q1

REPORT INFORMATION
  Report Type: Spontaneous
  Country: US (occurrence: US)
  Receive Date: 20140318
  Receipt Date: 20140318
  Transmission Date: 20141002
  Serious: Yes (Death)
  Sender: FDA-Public Use
  Company Number: US-BRISTOL-MYERS SQUIBB COMPANY-19911627

PATIENT
  Age: 77 Year
  Sex: Male
  Weight: 75 kg

DRUGS (11)
  1. ERBITUX [Suspect]
     Indication: COLORECTAL CANCER
  2. LIPITOR [Concomitant]
  3. ALBUTEROL [Concomitant]
  4. SYMBICORT [Concomitant]
  5. LASIX [Concomitant]
  6. LISINOPRIL [Concomitant]
  7. ATIVAN [Concomitant]
  8. METOPROLOL [Concomitant]
  9. PRILOSEC [Concomitant]
  10. ZOLOFT [Concomitant]
  11. SPIRIVA [Concomitant]

REACTIONS (1)
  - Cardiac arrest [Fatal]
